FAERS Safety Report 13458677 (Version 2)
Quarter: 2019Q4

REPORT INFORMATION
  Report Type: Other
  Country: CA (occurrence: CA)
  Receive Date: 20170419
  Receipt Date: 20191217
  Transmission Date: 20200122
  Serious: Yes (Hospitalization, Other)
  Sender: FDA-Public Use
  Company Number: CA-APOTEX-2017AP010091

PATIENT
  Sex: Female

DRUGS (46)
  1. ENBREL [Suspect]
     Active Substance: ETANERCEPT
     Indication: JOINT STIFFNESS
  2. ARAVA [Suspect]
     Active Substance: LEFLUNOMIDE
     Indication: JOINT STIFFNESS
  3. VOLTAREN [Suspect]
     Active Substance: DICLOFENAC SODIUM
     Indication: RHEUMATOID ARTHRITIS
     Dosage: UNK
     Route: 065
  4. ACETYLSALICYLIC ACID [Suspect]
     Active Substance: ASPIRIN
     Indication: RHEUMATOID ARTHRITIS
     Dosage: UNK
     Route: 065
  5. ACETYLSALICYLIC ACID [Suspect]
     Active Substance: ASPIRIN
     Indication: JOINT STIFFNESS
  6. METHOTREXATE. [Suspect]
     Active Substance: METHOTREXATE
     Indication: RHEUMATOID ARTHRITIS
     Dosage: UNK
     Route: 065
  7. NAPROSYN [Suspect]
     Active Substance: NAPROXEN
     Indication: RHEUMATOID ARTHRITIS
  8. ARAVA [Suspect]
     Active Substance: LEFLUNOMIDE
     Indication: MOBILITY DECREASED
  9. DICLOFENAC [Suspect]
     Active Substance: DICLOFENAC
     Indication: PAIN
  10. ENBREL [Suspect]
     Active Substance: ETANERCEPT
     Indication: RHEUMATOID ARTHRITIS
     Dosage: UNK
     Route: 058
  11. ENBREL [Suspect]
     Active Substance: ETANERCEPT
     Indication: MOBILITY DECREASED
  12. VOLTAREN [Suspect]
     Active Substance: DICLOFENAC SODIUM
     Indication: PAIN
  13. TRAMADOL. [Suspect]
     Active Substance: TRAMADOL
     Indication: PRODUCT USED FOR UNKNOWN INDICATION
     Dosage: UNK
     Route: 065
  14. ACETYLSALICYLIC ACID [Suspect]
     Active Substance: ASPIRIN
     Indication: PAIN
  15. HUMIRA [Suspect]
     Active Substance: ADALIMUMAB
     Indication: RHEUMATOID ARTHRITIS
     Dosage: UNK
     Route: 058
  16. VOLTAREN [Suspect]
     Active Substance: DICLOFENAC SODIUM
     Indication: JOINT STIFFNESS
  17. VOLTAREN [Suspect]
     Active Substance: DICLOFENAC SODIUM
     Indication: MOBILITY DECREASED
  18. DICLOFENAC [Suspect]
     Active Substance: DICLOFENAC
     Indication: MOBILITY DECREASED
  19. DICLOFENAC [Suspect]
     Active Substance: DICLOFENAC
     Indication: JOINT STIFFNESS
  20. METHOTREXATE. [Suspect]
     Active Substance: METHOTREXATE
     Indication: MOBILITY DECREASED
  21. PLAQUENIL                          /00072602/ [Suspect]
     Active Substance: HYDROXYCHLOROQUINE DIPHOSPHATE
     Indication: JOINT STIFFNESS
  22. NAPROSYN [Suspect]
     Active Substance: NAPROXEN
     Indication: JOINT STIFFNESS
  23. GOLD [Suspect]
     Active Substance: GOLD
     Indication: JOINT STIFFNESS
  24. ACETYLSALICYLIC ACID [Suspect]
     Active Substance: ASPIRIN
     Indication: MOBILITY DECREASED
  25. DICLOFENAC POTASSIUM. [Suspect]
     Active Substance: DICLOFENAC POTASSIUM
     Indication: RHEUMATOID ARTHRITIS
     Dosage: UNK
     Route: 065
  26. PLAQUENIL                          /00072602/ [Suspect]
     Active Substance: HYDROXYCHLOROQUINE DIPHOSPHATE
     Indication: RHEUMATOID ARTHRITIS
     Dosage: UNK
     Route: 065
  27. PLAQUENIL                          /00072602/ [Suspect]
     Active Substance: HYDROXYCHLOROQUINE DIPHOSPHATE
     Indication: MOBILITY DECREASED
  28. MOTRIN [Suspect]
     Active Substance: IBUPROFEN
     Indication: RHEUMATOID ARTHRITIS
     Dosage: UNK
     Route: 065
  29. MOTRIN [Suspect]
     Active Substance: IBUPROFEN
     Indication: MOBILITY DECREASED
  30. HUMIRA [Suspect]
     Active Substance: ADALIMUMAB
     Indication: JOINT STIFFNESS
  31. GOLD [Suspect]
     Active Substance: GOLD
     Indication: PAIN
  32. GOLD [Suspect]
     Active Substance: GOLD
     Indication: MOBILITY DECREASED
  33. ARAVA [Suspect]
     Active Substance: LEFLUNOMIDE
     Indication: PAIN
  34. METHOTREXATE. [Suspect]
     Active Substance: METHOTREXATE
     Indication: PAIN
  35. NAPROSYN [Suspect]
     Active Substance: NAPROXEN
     Indication: PAIN
  36. MOTRIN [Suspect]
     Active Substance: IBUPROFEN
     Indication: PAIN
  37. MOTRIN [Suspect]
     Active Substance: IBUPROFEN
     Indication: JOINT STIFFNESS
  38. HUMIRA [Suspect]
     Active Substance: ADALIMUMAB
     Indication: PAIN
  39. HUMIRA [Suspect]
     Active Substance: ADALIMUMAB
     Indication: MOBILITY DECREASED
  40. GOLD [Suspect]
     Active Substance: GOLD
     Indication: RHEUMATOID ARTHRITIS
     Dosage: UNK
     Route: 065
  41. ENBREL [Suspect]
     Active Substance: ETANERCEPT
     Indication: PAIN
  42. DICLOFENAC [Suspect]
     Active Substance: DICLOFENAC
     Indication: RHEUMATOID ARTHRITIS
     Dosage: UNK
     Route: 065
  43. METHOTREXATE. [Suspect]
     Active Substance: METHOTREXATE
     Indication: JOINT STIFFNESS
  44. PLAQUENIL                          /00072602/ [Suspect]
     Active Substance: HYDROXYCHLOROQUINE DIPHOSPHATE
     Indication: PAIN
  45. NAPROSYN [Suspect]
     Active Substance: NAPROXEN
     Indication: MOBILITY DECREASED
     Dosage: UNK
     Route: 065
  46. ARAVA [Suspect]
     Active Substance: LEFLUNOMIDE
     Indication: RHEUMATOID ARTHRITIS
     Dosage: UNK
     Route: 065

REACTIONS (13)
  - Eating disorder [Unknown]
  - Dizziness [Unknown]
  - Weight decreased [Unknown]
  - Deafness [Unknown]
  - Off label use [Unknown]
  - Abdominal pain upper [Unknown]
  - Pharyngitis [Unknown]
  - Decreased appetite [Unknown]
  - Abdominal discomfort [Unknown]
  - Vomiting [Unknown]
  - Ear infection [Unknown]
  - Nausea [Unknown]
  - Headache [Unknown]
